FAERS Safety Report 12401416 (Version 1)
Quarter: 2016Q2

REPORT INFORMATION
  Report Type: Spontaneous
  Country: US (occurrence: None)
  Receive Date: 20160524
  Receipt Date: 20160524
  Transmission Date: 20160815
  Serious: Yes (Hospitalization)
  Sender: FDA-Public Use
  Company Number: None

PATIENT
  Age: 73 Year
  Sex: Female
  Weight: 93.4 kg

DRUGS (2)
  1. GABAPENTIN. [Concomitant]
     Active Substance: GABAPENTIN
  2. VELCADE [Suspect]
     Active Substance: BORTEZOMIB
     Dates: end: 20160422

REACTIONS (2)
  - Hypotension [None]
  - Dizziness [None]

NARRATIVE: CASE EVENT DATE: 20160429
